FAERS Safety Report 10597829 (Version 1)
Quarter: 2014Q4

REPORT INFORMATION
  Report Type: Spontaneous
  Country: US (occurrence: None)
  Receive Date: 20141120
  Receipt Date: 20141120
  Transmission Date: 20150529
  Serious: Yes (Hospitalization)
  Sender: FDA-Public Use
  Company Number: None

PATIENT
  Age: 72 Year
  Sex: Female
  Weight: 84.37 kg

DRUGS (1)
  1. XARELTO [Suspect]
     Active Substance: RIVAROXABAN
     Indication: ATRIAL FIBRILLATION
     Dosage: 1, ONCE DAILY, TAKEN BY MOUTH
     Route: 048
     Dates: start: 20140101, end: 20141004

REACTIONS (7)
  - Impaired driving ability [None]
  - Confusional state [None]
  - Nausea [None]
  - Cognitive disorder [None]
  - Cerebral haemorrhage [None]
  - Influenza [None]
  - Vomiting [None]

NARRATIVE: CASE EVENT DATE: 20141007
